FAERS Safety Report 13821726 (Version 1)
Quarter: 2017Q3

REPORT INFORMATION
  Report Type: Spontaneous
  Country: US (occurrence: US)
  Receive Date: 20170801
  Receipt Date: 20170801
  Transmission Date: 20171127
  Serious: No
  Sender: FDA-Public Use
  Company Number: US-009507513-1707USA011204

PATIENT
  Age: 23 Year
  Sex: Female
  Weight: 77.1 kg

DRUGS (1)
  1. NEXPLANON [Suspect]
     Active Substance: ETONOGESTREL
     Indication: CONTRACEPTION
     Dosage: 1 ROD UP TO 3 YEARS
     Route: 059
     Dates: start: 201501, end: 20170613

REACTIONS (3)
  - Menstruation delayed [Not Recovered/Not Resolved]
  - Blood gonadotrophin decreased [Unknown]
  - Pregnancy test negative [Unknown]

NARRATIVE: CASE EVENT DATE: 2017
